FAERS Safety Report 6215220-3 (Version None)
Quarter: 2009Q2

REPORT INFORMATION
  Report Type: 
  Country: None (occurrence: None)
  Receive Date: 20090604
  Receipt Date: 20090528
  Transmission Date: 20091009
  Serious: Yes (Hospitalization)
  Sender: FDA-Public Use
  Company Number: AU-NOVOPROD-287816

PATIENT
  Sex: Female

DRUGS (2)
  1. MIXTARD HUMAN 70/30 [Suspect]
     Indication: DIABETES MELLITUS
     Dosage: 42 IU, QD
  2. MIXTARD HUMAN 70/30 [Suspect]
     Dosage: 20 IU, QD

REACTIONS (2)
  - BLOOD GLUCOSE INCREASED [None]
  - FALL [None]
